FAERS Safety Report 6474525-1 (Version None)
Quarter: 2009Q4

REPORT INFORMATION
  Report Type: 
  Country: None (occurrence: None)
  Receive Date: 20091123
  Receipt Date: 20090831
  Transmission Date: 20100525
  Serious: No
  Sender: FDA-Public Use
  Company Number: 8051296

PATIENT
  Sex: Female

DRUGS (4)
  1. CIMZIA [Suspect]
     Indication: CROHN'S DISEASE
     Dosage: 400 MG SC
     Route: 058
     Dates: start: 20090401
  2. GENERIC BIRTH CONTROL PILL [Concomitant]
  3. FLAGYL [Concomitant]
  4. PREDNISONE [Concomitant]

REACTIONS (2)
  - HYPOAESTHESIA [None]
  - MIGRAINE [None]
